FAERS Safety Report 24446364 (Version 1)
Quarter: 2024Q4

REPORT INFORMATION
  Report Type: Spontaneous
  Country: CA (occurrence: CA)
  Receive Date: 20241016
  Receipt Date: 20241016
  Transmission Date: 20250115
  Serious: Yes (Death)
  Sender: TEVA
  Company Number: CA-TEVA-VS-3252558

PATIENT
  Age: 61 Year
  Sex: Male
  Weight: 94 kg

DRUGS (3)
  1. CISPLATIN [Suspect]
     Active Substance: CISPLATIN
     Indication: Seminoma
     Dosage: TIME INTERVAL: CYCLICAL: CISPLATIN INJECTION BPSINGLE-USE , DOSE FORM : SOLUTION INTRAVENOUS
     Route: 042
  2. ETOPOSIDE [Suspect]
     Active Substance: ETOPOSIDE
     Indication: Seminoma
     Dosage: TIME INTERVAL: CYCLICAL: DOSE FORM : LIQUID INTRAVENOUS
     Route: 042
  3. BLEOMYCIN SULFATE [Concomitant]
     Active Substance: BLEOMYCIN SULFATE
     Indication: Product used for unknown indication
     Dosage: BLEOMYCIN SULPHATE FOR INJECTION USP
     Route: 065

REACTIONS (2)
  - Febrile neutropenia [Fatal]
  - Sepsis [Fatal]
